FAERS Safety Report 19519097 (Version 1)
Quarter: 2021Q3

REPORT INFORMATION
  Report Type: Report from Study
  Country: US (occurrence: US)
  Receive Date: 20210712
  Receipt Date: 20210712
  Transmission Date: 20211014
  Serious: Yes (Other)
  Sender: FDA-Public Use
  Company Number: NVSC2021US149542

PATIENT
  Sex: Female

DRUGS (1)
  1. KESIMPTA [Suspect]
     Active Substance: OFATUMUMAB
     Indication: MULTIPLE SCLEROSIS
     Dosage: 20 MG
     Route: 058
     Dates: start: 20210326

REACTIONS (10)
  - Cognitive disorder [Unknown]
  - Pain [Unknown]
  - Staring [Unknown]
  - Gastrointestinal disorder [Unknown]
  - Aphasia [Unknown]
  - Memory impairment [Unknown]
  - Diarrhoea [Unknown]
  - Magnetic resonance imaging abnormal [Unknown]
  - Headache [Unknown]
  - Vomiting [Unknown]
